FAERS Safety Report 4855593-7 (Version None)
Quarter: 2005Q4

REPORT INFORMATION
  Report Type: 
  Country: None (occurrence: None)
  Receive Date: 20051214
  Receipt Date: 20051202
  Transmission Date: 20060501
  Serious: Yes (Other)
  Sender: FDA-Public Use
  Company Number: S05-UKI-05646-01

PATIENT
  Age: 75 Year
  Sex: Female

DRUGS (12)
  1. ESCITALOPRAM OXALATE [Suspect]
     Indication: DEPRESSION
     Dosage: 15 MG QD PO
     Route: 048
     Dates: start: 20051118, end: 20051121
  2. AMLODIPINE [Concomitant]
  3. TRANDOLAPRIL [Concomitant]
  4. GALFER (FERROUS FUMARATE) [Concomitant]
  5. LANSOPRAZOLE [Concomitant]
  6. ACTONEL [Concomitant]
  7. CALCICHEW (CALCIUM CARBONATE) [Concomitant]
  8. ATORVASTATIN [Concomitant]
  9. ASPIRIN [Concomitant]
  10. MULTIVITAMIN [Concomitant]
  11. FORTISIP [Concomitant]
  12. CALOGEN (CALCITONIN, SALMON) [Concomitant]

REACTIONS (4)
  - DRUG HYPERSENSITIVITY [None]
  - PYREXIA [None]
  - RASH [None]
  - TACHYCARDIA [None]
